FAERS Safety Report 16163183 (Version 1)
Quarter: 2019Q2

REPORT INFORMATION
  Report Type: Spontaneous
  Country: US (occurrence: US)
  Receive Date: 20190405
  Receipt Date: 20190405
  Transmission Date: 20190711
  Serious: No
  Sender: FDA-Public Use
  Company Number: US-ALLERGAN-1851879US

PATIENT
  Sex: Female

DRUGS (1)
  1. ZENPEP [Suspect]
     Active Substance: PANCRELIPASE AMYLASE\PANCRELIPASE LIPASE\PANCRELIPASE PROTEASE
     Indication: GASTROINTESTINAL BACTERIAL OVERGROWTH
     Dosage: TAKING PRIOR TO EVERY MEAL, THE AMOUNT TAKEN DEPENDS ON SIZE OF MEAL (1 IF A SNACK AND 2 IF A MEAL)
     Route: 065
     Dates: start: 20181026

REACTIONS (1)
  - Off label use [Unknown]
